FAERS Safety Report 10364431 (Version 1)
Quarter: 2014Q3

REPORT INFORMATION
  Report Type: Spontaneous
  Country: US (occurrence: None)
  Receive Date: 20140805
  Receipt Date: 20140805
  Transmission Date: 20150326
  Serious: Yes (Death)
  Sender: FDA-Public Use
  Company Number: None

PATIENT
  Age: 53 Year
  Sex: Male

DRUGS (2)
  1. RIBAVARIN [Suspect]
     Active Substance: RIBAVIRIN
     Indication: HEPATITIS VIRAL
     Dosage: 3 CAPS BID ORAL
     Route: 048
     Dates: start: 20140603, end: 20140710
  2. PEG-INTRON RP [Concomitant]

REACTIONS (1)
  - Cardiac failure congestive [None]
